FAERS Safety Report 8502910-2 (Version None)
Quarter: 2012Q3

REPORT INFORMATION
  Report Type: 
  Country: None (occurrence: None)
  Receive Date: 20120711
  Receipt Date: 20120706
  Transmission Date: 20120928
  Serious: Yes (Other)
  Sender: FDA-Public Use
  Company Number: US-PFIZER INC-2012159135

PATIENT
  Sex: Female
  Weight: 61.22 kg

DRUGS (6)
  1. BENICAR [Concomitant]
     Indication: HYPERTENSION
     Dosage: 20 MG, DAILY
  2. PROTONIX [Suspect]
     Indication: DYSPEPSIA
     Dosage: 40 MG, 2X/DAY
     Dates: end: 20110101
  3. ERGOCALCIFEROL [Concomitant]
     Indication: VITAMIN D DEFICIENCY
     Dosage: 1.25 MG, MONTHLY
  4. CALCIUM [Concomitant]
     Dosage: 600 MG, DAILY
  5. VITAMIN B-12 [Concomitant]
     Dosage: 1000 MG, DAILY
  6. ASPIRIN [Concomitant]
     Indication: ANTICOAGULANT THERAPY
     Dosage: 325 MG, DAILY

REACTIONS (1)
  - BREAST CANCER FEMALE [None]
